FAERS Safety Report 7431092-3 (Version None)
Quarter: 2011Q2

REPORT INFORMATION
  Report Type: 
  Country: None (occurrence: None)
  Receive Date: 20110421
  Receipt Date: 20110415
  Transmission Date: 20111010
  Serious: Yes (Other)
  Sender: FDA-Public Use
  Company Number: US-CEPHALON-2011001456

PATIENT

DRUGS (4)
  1. ADDERALL 10 [Concomitant]
  2. FENTORA [Suspect]
     Indication: RED MAN SYNDROME
     Route: 002
  3. METHADONE [Concomitant]
  4. CLONIDINE [Concomitant]

REACTIONS (6)
  - APNOEA [None]
  - ANXIETY [None]
  - HYPERHIDROSIS [None]
  - TREMOR [None]
  - FEELING JITTERY [None]
  - DRUG WITHDRAWAL SYNDROME [None]
